FAERS Safety Report 20322725 (Version 1)
Quarter: 2022Q1

REPORT INFORMATION
  Report Type: Spontaneous
  Country: US (occurrence: None)
  Receive Date: 20220111
  Receipt Date: 20220111
  Transmission Date: 20220423
  Serious: Yes (Other)
  Sender: FDA-Public Use
  Company Number: None

PATIENT
  Age: 44 Year
  Sex: Female

DRUGS (5)
  1. GLATIRAMER [Suspect]
     Active Substance: GLATIRAMER
     Indication: Multiple sclerosis
     Dosage: INJECT 1 SYRINGE UNDER THE SKIN (SUBCUTANNEOUS INJECTIO) THREE TIMES PER WEEK
     Route: 058
     Dates: start: 20210210
  2. GLATIRAMER [Suspect]
     Active Substance: GLATIRAMER
     Dosage: OTHER QUANTITY : 1 SYRINGE;?FREQUENCY : 3 TIMES A WEEK;?
     Route: 058
  3. COPAXONE [Concomitant]
     Active Substance: GLATIRAMER ACETATE
  4. FISH OIL [Concomitant]
     Active Substance: FISH OIL
  5. VITA,OM D3 [Concomitant]

REACTIONS (1)
  - Surgery [None]

NARRATIVE: CASE EVENT DATE: 20211213
